FAERS Safety Report 17413165 (Version 1)
Quarter: 2020Q1

REPORT INFORMATION
  Report Type: Spontaneous
  Country: US (occurrence: US)
  Receive Date: 20200212
  Receipt Date: 20200212
  Transmission Date: 20200409
  Serious: Yes (Other)
  Sender: FDA-Public Use
  Company Number: None

PATIENT
  Age: 48 Year
  Sex: Female

DRUGS (4)
  1. BUPRENORPHINE HYDROCHLORIDE-NALOXONE HCI 8 MG-Z MG TABLET [Concomitant]
     Dates: start: 20200210, end: 20200211
  2. BUPRENORPHINE/NALAXONE TABLETS [Suspect]
     Active Substance: BUPRENORPHINE HYDROCHLORIDE\NALOXONE HYDROCHLORIDE
     Indication: DRUG DEPENDENCE
     Route: 048
     Dates: start: 20200210, end: 20200212
  3. BUPRENORPHINE NALOXONE 8-2MG TABLETS [Concomitant]
     Active Substance: BUPRENORPHINE HYDROCHLORIDE\NALOXONE HYDROCHLORIDE
     Dates: start: 20180509, end: 20180607
  4. BUPRENORPHINE NALOXONE 8-2MG FILMS [Concomitant]
     Dates: start: 20200212, end: 20200212

REACTIONS (2)
  - Product taste abnormal [None]
  - Retching [None]

NARRATIVE: CASE EVENT DATE: 20200212
